FAERS Safety Report 10544697 (Version 1)
Quarter: 2014Q4

REPORT INFORMATION
  Report Type: Spontaneous
  Country: US (occurrence: None)
  Receive Date: 20141010
  Receipt Date: 20141010
  Transmission Date: 20150529
  Serious: No
  Sender: FDA-Public Use
  Company Number: 163-POMAL-14034591

PATIENT
  Age: 66 Year
  Sex: Female

DRUGS (16)
  1. SIMVASTATIN (SIMVASTATIN) (UNKNOWN) [Concomitant]
     Active Substance: SIMVASTATIN
  2. NITROFURANTOIN MONO-MAC (NITROFURANTOIN) (UNKNOWN) [Concomitant]
  3. ALLEGRA (FEXOFENADINE HYDROCHLORIDE) (UNKNOWN) [Concomitant]
  4. SENNA (SENNA) (UNKNOWN) [Concomitant]
  5. LYRICA (PREGABALIN) (UNKNOWN) [Concomitant]
  6. POMALYST [Suspect]
     Active Substance: POMALIDOMIDE
     Indication: PLASMA CELL MYELOMA
     Dosage: 4 MG,  21 IN 21 D,  PO
     Route: 048
     Dates: start: 20140227
  7. CALCIUM (CALCIUM) (UNKNOWN) [Concomitant]
  8. HYDROCODONE (HYDROCODONE) (UNKNOWN) [Concomitant]
  9. VITAMIN D (ERGOCALCIFEROL) (UNKNOWN) [Concomitant]
  10. AMOX TR-POTASSIUM CLAVULANATE (UNKNOWN) [Concomitant]
  11. DEXAMETHASONE (DEXAMETHASONE) (UNKNOWN) [Concomitant]
     Active Substance: DEXAMETHASONE
  12. HYDROCHLOROTHIAZIDE (HYDROCHLOROTHIAZIDE) (UNKNOWN) [Concomitant]
  13. IMIPRAMINE (IMIPRAMINE) (UNKNOWN) [Concomitant]
  14. MULTIVITAMINS (MULTIVITAMINS) (UNKNOWN) [Concomitant]
  15. GUAIFENSEIN AC (CHERACOL /USA/) (UNKNOWN) [Concomitant]
  16. DETROL (TOLTERODINE L-TARTRATE) (UNKNOWN) [Concomitant]

REACTIONS (2)
  - Sciatica [None]
  - Pneumonia [None]

NARRATIVE: CASE EVENT DATE: 2014
